FAERS Safety Report 8585575-3 (Version None)
Quarter: 2012Q3

REPORT INFORMATION
  Report Type: 
  Country: None (occurrence: None)
  Receive Date: 20120810
  Receipt Date: 20120802
  Transmission Date: 20120928
  Serious: Yes (Other)
  Sender: FDA-Public Use
  Company Number: CA-JNJFOC-20110206953

PATIENT
  Sex: Female
  Weight: 67 kg

DRUGS (4)
  1. REMICADE [Suspect]
     Indication: COLITIS ULCERATIVE
     Route: 042
     Dates: start: 20091107
  2. REMICADE [Suspect]
     Route: 042
     Dates: start: 20091101
  3. VALTREX [Concomitant]
     Route: 065
  4. REMICADE [Suspect]
     Dosage: HAS HAD 26 INFUSIONS TILL THE TIME OF THE REPORT
     Route: 042
     Dates: start: 20110121

REACTIONS (4)
  - OEDEMA PERIPHERAL [None]
  - UMBILICAL HERNIA [None]
  - MATERNAL EXPOSURE DURING PREGNANCY [None]
  - MUSCULOSKELETAL STIFFNESS [None]
